FAERS Safety Report 23535341 (Version 1)
Quarter: 2024Q1

REPORT INFORMATION
  Report Type: Spontaneous
  Country: US (occurrence: US)
  Receive Date: 20240218
  Receipt Date: 20240218
  Transmission Date: 20240410
  Serious: Yes (Other)
  Sender: FDA-Public Use
  Company Number: US-AUROBINDO-AUR-APL-2024-006442

PATIENT
  Age: 60 Year
  Sex: Female

DRUGS (5)
  1. CAPECITABINE [Suspect]
     Active Substance: CAPECITABINE
     Indication: Nonkeratinising carcinoma of nasopharynx
     Dosage: UNK
     Route: 065
  2. CISPLATIN [Suspect]
     Active Substance: CISPLATIN
     Indication: Radiotherapy
     Dosage: FOUR CYCLES
     Route: 065
  3. CISPLATIN [Suspect]
     Active Substance: CISPLATIN
     Indication: Nonkeratinising carcinoma of nasopharynx
  4. GEMCITABINE [Suspect]
     Active Substance: GEMCITABINE
     Indication: Nonkeratinising carcinoma of nasopharynx
     Dosage: FOUR CYCLES
     Route: 065
  5. PEMBROLIZUMAB [Concomitant]
     Active Substance: PEMBROLIZUMAB
     Indication: Nonkeratinising carcinoma of nasopharynx
     Dosage: UNK
     Route: 065

REACTIONS (1)
  - Drug ineffective [Unknown]
